FAERS Safety Report 25632305 (Version 1)
Quarter: 2025Q3

REPORT INFORMATION
  Report Type: Spontaneous
  Country: US (occurrence: None)
  Receive Date: 20250731
  Receipt Date: 20250731
  Transmission Date: 20251020
  Serious: Yes (Other)
  Sender: FDA-CTU
  Company Number: None

PATIENT
  Age: 75 Year
  Sex: Male

DRUGS (4)
  1. TROSPIUM CHLORIDE\XANOMELINE [Suspect]
     Active Substance: TROSPIUM CHLORIDE\XANOMELINE
     Dosage: 1 DF DOSAGE FORM DAILY ORAL
     Route: 048
  2. Loratidine 10 mg Daily [Concomitant]
  3. PANTOPRAZOLE [Concomitant]
     Active Substance: PANTOPRAZOLE
  4. Propranolol 20 mg BID [Concomitant]

REACTIONS (1)
  - Urinary retention [None]

NARRATIVE: CASE EVENT DATE: 20250530
